FAERS Safety Report 20860340 (Version 2)
Quarter: 2022Q2

REPORT INFORMATION
  Report Type: Report from Study
  Country: US (occurrence: US)
  Receive Date: 20220523
  Receipt Date: 20220620
  Transmission Date: 20220721
  Serious: Yes (Hospitalization)
  Sender: FDA-Public Use
  Company Number: US-BAXTER-2022BAX010260

PATIENT
  Age: 67 Year
  Sex: Female
  Weight: 65.4 kg

DRUGS (44)
  1. DOXORUBICIN [Suspect]
     Active Substance: DOXORUBICIN
     Indication: Acute lymphocytic leukaemia recurrent
     Dosage: 10 MG/M2/DAY CIV DAYS 1-4 Q28 DAYS
     Route: 065
     Dates: start: 20220420, end: 20220424
  2. DOXORUBICIN [Suspect]
     Active Substance: DOXORUBICIN
     Indication: B-cell type acute leukaemia
  3. CYCLOPHOSPHAMIDE [Suspect]
     Active Substance: CYCLOPHOSPHAMIDE
     Indication: Acute lymphocytic leukaemia recurrent
     Dosage: 750 MG/M2 IV DAY 5 Q28 DAYS, INTRAVENOUS
     Route: 042
     Dates: start: 20220425, end: 20220425
  4. CYCLOPHOSPHAMIDE [Suspect]
     Active Substance: CYCLOPHOSPHAMIDE
     Indication: B-cell type acute leukaemia
  5. INOTUZUMAB OZOGAMICIN [Suspect]
     Active Substance: INOTUZUMAB OZOGAMICIN
     Indication: Acute lymphocytic leukaemia recurrent
     Dosage: 0.6 MG/M2 ON DAY 8
     Route: 065
     Dates: start: 20220426
  6. INOTUZUMAB OZOGAMICIN [Suspect]
     Active Substance: INOTUZUMAB OZOGAMICIN
     Indication: B-cell type acute leukaemia
     Dosage: 0.3 MG/M2 ON DAY 15
     Route: 065
     Dates: start: 20220503
  7. VINCRISTINE SULFATE [Suspect]
     Active Substance: VINCRISTINE SULFATE
     Indication: Acute lymphocytic leukaemia recurrent
     Dosage: 0.4 MG/M2/DAY CIV DAYS 1-4 Q28 DAYS
     Route: 065
     Dates: start: 20220420, end: 20220424
  8. VINCRISTINE SULFATE [Suspect]
     Active Substance: VINCRISTINE SULFATE
     Indication: B-cell type acute leukaemia
  9. ETOPOSIDE [Suspect]
     Active Substance: ETOPOSIDE
     Indication: Acute lymphocytic leukaemia recurrent
     Dosage: 50 MG/M2/DAY, CIV DAYS 1-4 Q28 DAYS
     Route: 065
     Dates: start: 20220420, end: 20220424
  10. ETOPOSIDE [Suspect]
     Active Substance: ETOPOSIDE
     Indication: B-cell type acute leukaemia
  11. FLUCONAZOLE [Suspect]
     Active Substance: FLUCONAZOLE
     Dosage: 200 MG, 1X/DAY
     Route: 048
  12. LEVOFLOXACIN [Suspect]
     Active Substance: LEVOFLOXACIN
     Dosage: 750 MG, AS NEEDED
     Route: 048
  13. ACYCLOVIR [Suspect]
     Active Substance: ACYCLOVIR
     Dosage: 800 MG, 2X/DAY
     Route: 048
  14. CALCIUM CARBONATE [Suspect]
     Active Substance: CALCIUM CARBONATE
     Dosage: 1250(500 CA) MG, 1X/DAY
     Route: 048
  15. CARBOXYMETHYLCELLULOSE [Suspect]
     Active Substance: CARBOXYMETHYLCELLULOSE
     Dosage: CARBOXYMETHYLCELLULOSE PF 1% OPHTHALMIC GEL, PLACE 1 DROP TO EACH EYE QD, 2 GGT
     Route: 047
  16. FAMOTIDINE [Suspect]
     Active Substance: FAMOTIDINE
     Dosage: 20 MG, 2X/DAY
     Route: 048
  17. LETROZOLE [Suspect]
     Active Substance: LETROZOLE
     Dosage: 2.5 MG, 1X/DAY
     Route: 048
  18. ONDANSETRON HYDROCHLORIDE [Suspect]
     Active Substance: ONDANSETRON HYDROCHLORIDE
     Dosage: 1 TABLET PO Q8HR
     Route: 048
  19. POTASSIUM CHLORIDE [Suspect]
     Active Substance: POTASSIUM CHLORIDE
     Dosage: 20 MEQ ER TABLET, 2 TABLETS PO QD
     Route: 048
  20. PROCHLORPERAZINE [Suspect]
     Active Substance: PROCHLORPERAZINE
     Dosage: 1 TABLET PO Q6HR PRN
     Route: 048
  21. ROSUVASTATIN [Suspect]
     Active Substance: ROSUVASTATIN
     Dosage: 5 MG, 1X/DAY
     Route: 048
  22. SCOPOLAMINE [Suspect]
     Active Substance: SCOPOLAMINE
     Dosage: 1 MG/3DAYS PATCH, PLACE 1 PATCH ON THE SKIN EVERY 72 HOURS
     Route: 048
  23. SENNA [Suspect]
     Active Substance: SENNA LEAF\SENNOSIDES\SENNOSIDES A AND B
     Dosage: 1-2 TABLETS PO PRN, 1 AS REQUIRED
     Route: 048
  24. SULFAMETHIZOLE\TRIMETHOPRIM [Suspect]
     Active Substance: SULFAMETHIZOLE\TRIMETHOPRIM
     Dosage: [SULFAMETHOXAZOLE 800 MG]/[TRIMETHOPRIM 160MG], 1 TABLET PO BID ON MONDAY AND TUESDAY
     Route: 048
  25. TORSEMIDE [Suspect]
     Active Substance: TORSEMIDE
     Dosage: 20 MG TABLET, 2 TABLETS PO BLD FOR 5 DAYS
     Route: 048
  26. URSODIOL [Suspect]
     Active Substance: URSODIOL
     Dosage: 250 MG TABLET, 1.5 TABLETS PO BID
     Route: 048
  27. FLUCONAZOLE [Concomitant]
     Active Substance: FLUCONAZOLE
     Route: 048
  28. LEVOFLOXACIN [Concomitant]
     Active Substance: LEVOFLOXACIN
     Route: 048
  29. ACYCLOVIR [Concomitant]
     Active Substance: ACYCLOVIR
     Route: 048
  30. CALCIUM CARBONATE [Concomitant]
     Active Substance: CALCIUM CARBONATE
     Route: 048
  31. CARBOXYMETHYLCELLULOSE [Concomitant]
     Active Substance: CARBOXYMETHYLCELLULOSE
     Route: 047
  32. FAMOTIDINE [Concomitant]
     Active Substance: FAMOTIDINE
     Route: 048
  33. LETROZOLE [Concomitant]
     Active Substance: LETROZOLE
     Route: 048
  34. ONDANSETRON [Concomitant]
     Active Substance: ONDANSETRON
     Route: 048
  35. POTASSIUM CHLORIDE [Concomitant]
     Active Substance: POTASSIUM CHLORIDE
     Route: 048
  36. PROCHLORPERAZINE [Concomitant]
     Active Substance: PROCHLORPERAZINE
     Indication: Nausea
     Route: 048
  37. PROCHLORPERAZINE [Concomitant]
     Active Substance: PROCHLORPERAZINE
     Indication: Vomiting
  38. ROSUVASTATIN [Concomitant]
     Active Substance: ROSUVASTATIN
     Route: 048
  39. SCOPOLAMINE [Concomitant]
     Active Substance: SCOPOLAMINE
     Route: 048
  40. SENNA [Concomitant]
     Active Substance: SENNA LEAF\SENNOSIDES\SENNOSIDES A AND B
     Indication: Constipation
     Dosage: (SENNOSIDE A+B)
     Route: 048
  41. SULFAMETHIZOLE\TRIMETHOPRIM [Concomitant]
     Active Substance: SULFAMETHIZOLE\TRIMETHOPRIM
     Dosage: UNK
     Route: 048
  42. TORSEMIDE [Concomitant]
     Active Substance: TORSEMIDE
     Route: 048
  43. URSODIOL [Concomitant]
     Active Substance: URSODIOL
     Route: 048
  44. OLANZAPINE [Concomitant]
     Active Substance: OLANZAPINE
     Dosage: UNK
     Route: 048

REACTIONS (1)
  - Nausea [Recovered/Resolved]

NARRATIVE: CASE EVENT DATE: 20220428
